FAERS Safety Report 7118042-4 (Version None)
Quarter: 2010Q4

REPORT INFORMATION
  Report Type: 
  Country: None (occurrence: None)
  Receive Date: 20101123
  Receipt Date: 20101111
  Transmission Date: 20110411
  Serious: Yes (Hospitalization)
  Sender: FDA-Public Use
  Company Number: US-ELI_LILLY_AND_COMPANY-US201011003572

PATIENT
  Sex: Female
  Weight: 72.562 kg

DRUGS (3)
  1. BYETTA [Suspect]
     Indication: TYPE 2 DIABETES MELLITUS
     Dosage: 10 UG, DAILY (1/D)
     Route: 058
  2. BYETTA [Suspect]
     Dosage: 5 UG, DAILY (1/D)
     Route: 058
  3. METFORMIN HCL [Concomitant]
     Indication: TYPE 2 DIABETES MELLITUS
     Dosage: 500 MG, 2/D
     Route: 048

REACTIONS (6)
  - FALL [None]
  - HYPOGLYCAEMIA [None]
  - KNEE ARTHROPLASTY [None]
  - POST PROCEDURAL COMPLICATION [None]
  - SCIATICA [None]
  - TREMOR [None]
